FAERS Safety Report 4493216-X (Version None)
Quarter: 2004Q4

REPORT INFORMATION
  Report Type: 
  Country: None (occurrence: None)
  Receive Date: 20041025
  Receipt Date: 20030922
  Transmission Date: 20050328
  Serious: No
  Sender: FDA-Public Use
  Company Number: CART-10285

PATIENT
  Age: 41 Year
  Sex: Female

DRUGS (1)
  1. CARTICEL [Suspect]
     Indication: ARTHROPATHY
     Dosage: 1 NA ONCE IS
     Dates: start: 20030124, end: 20030124

REACTIONS (5)
  - CONTUSION [None]
  - PAIN [None]
  - POST PROCEDURAL COMPLICATION [None]
  - TENDON DISORDER [None]
  - TENDONITIS [None]
